FAERS Safety Report 8571699-3 (Version None)
Quarter: 2012Q3

REPORT INFORMATION
  Report Type: 
  Country: None (occurrence: None)
  Receive Date: 20120806
  Receipt Date: 20120727
  Transmission Date: 20120928
  Serious: Yes (Other)
  Sender: FDA-Public Use
  Company Number: US-JNJFOC-20111107371

PATIENT
  Sex: Male
  Weight: 124.74 kg

DRUGS (6)
  1. REMICADE [Suspect]
     Indication: RHEUMATOID ARTHRITIS
     Route: 042
     Dates: start: 20101008, end: 20110911
  2. LEFLUNOMIDE [Concomitant]
     Indication: MUSCULOSKELETAL PAIN
     Route: 065
     Dates: start: 20090701
  3. MULTIGEN VITAMIN [Concomitant]
     Indication: ANAEMIA
     Route: 048
     Dates: start: 20080101
  4. BENADRYL [Concomitant]
     Indication: PREMEDICATION
     Route: 065
  5. ARAVA [Concomitant]
     Indication: ARTHRITIS
     Route: 048
     Dates: start: 20090101
  6. HYDROCHLOROTHIAZDE TAB [Concomitant]
     Indication: HYPERTENSION
     Route: 048
     Dates: start: 20090101

REACTIONS (5)
  - URTICARIA [None]
  - PRURITUS [None]
  - BLOOD PRESSURE INCREASED [None]
  - INFUSION RELATED REACTION [None]
  - ANTIBODY TEST POSITIVE [None]
